FAERS Safety Report 8623744-4 (Version None)
Quarter: 2012Q3

REPORT INFORMATION
  Report Type: 
  Country: None (occurrence: None)
  Receive Date: 20120827
  Receipt Date: 20120817
  Transmission Date: 20120928
  Serious: Yes (Hospitalization)
  Sender: FDA-Public Use
  Company Number: DE-TEVA-336755GER

PATIENT
  Sex: Female
  Weight: 72 kg

DRUGS (10)
  1. LAPATINIB [Suspect]
     Indication: BREAST CANCER
     Dosage: 750 MILLIGRAM DAILY;
     Route: 048
     Dates: start: 20120315
  2. TRASTUZUMAB [Suspect]
     Indication: BREAST CANCER
     Route: 042
     Dates: start: 20120315, end: 20120425
  3. PACLITAXEL [Suspect]
     Indication: BREAST CANCER
     Dates: start: 20120315, end: 20120502
  4. GRANOCYTE [Concomitant]
     Dates: start: 20120426, end: 20120429
  5. DOXORUBICIN HYDROCHLORIDE [Suspect]
     Indication: BREAST CANCER
     Route: 042
     Dates: start: 20120315, end: 20120502
  6. CARBOPLATIN [Suspect]
     Route: 042
     Dates: start: 20120516
  7. CARBOPLATIN [Suspect]
     Indication: BREAST CANCER
     Dates: start: 20120315, end: 20120502
  8. DOXORUBICIN HYDROCHLORIDE [Suspect]
     Dosage: 4.7143 MILLIGRAM DAILY;
     Route: 042
     Dates: start: 20120516
  9. PACLITAXEL [Suspect]
     Dosage: 11.4286 MG/M2 DAILY;
     Route: 042
     Dates: start: 20120516
  10. CIPROFLOXACIN HCL [Concomitant]
     Dosage: 1000 MILLIGRAM DAILY;
     Dates: start: 20120419, end: 20120420

REACTIONS (1)
  - STOMATITIS [None]
